FAERS Safety Report 4720257-7 (Version None)
Quarter: 2005Q3

REPORT INFORMATION
  Report Type: 
  Country: None (occurrence: None)
  Receive Date: 20050714
  Receipt Date: 20040917
  Transmission Date: 20060218
  Serious: Yes (Other)
  Sender: FDA-Public Use
  Company Number: 2005BH000479

PATIENT
  Sex: Male

DRUGS (1)
  1. HEMOFIL [Suspect]
     Indication: HAEMOPHILIA
     Dates: start: 19810101, end: 19870101

REACTIONS (3)
  - HEPATITIS C [None]
  - HIV INFECTION [None]
  - PHARMACEUTICAL PRODUCT COMPLAINT [None]
